FAERS Safety Report 21866542 (Version 2)
Quarter: 2024Q1

REPORT INFORMATION
  Report Type: Spontaneous
  Country: US (occurrence: US)
  Receive Date: 20230116
  Receipt Date: 20240208
  Transmission Date: 20240410
  Serious: No
  Sender: FDA-Public Use
  Company Number: US-INTRA-CELLULAR THERAPIES, INC.-2022ICT01759

PATIENT
  Age: 29 Year
  Sex: Female
  Weight: 117.91 kg

DRUGS (5)
  1. CAPLYTA [Suspect]
     Active Substance: LUMATEPERONE
     Dosage: 42 MG, 1X/DAY
     Route: 048
     Dates: start: 20221205, end: 202212
  2. CAFFEINE [Suspect]
     Active Substance: CAFFEINE
     Dosage: 400 MG PER DAY
     Dates: end: 202212
  3. CAFFEINE [Suspect]
     Active Substance: CAFFEINE
     Dosage: UNK
     Dates: start: 202212
  4. UNSPECIFIED INGREDIENT [Concomitant]
     Active Substance: UNSPECIFIED INGREDIENT
     Dosage: UNK
     Dates: end: 202212
  5. UNSPECIFIED INGREDIENT [Concomitant]
     Active Substance: UNSPECIFIED INGREDIENT
     Dosage: UNK
     Dates: start: 202212

REACTIONS (7)
  - Performance status decreased [Recovering/Resolving]
  - Asthenia [Recovering/Resolving]
  - Feeling hot [Recovering/Resolving]
  - Flushing [Unknown]
  - Blood pressure increased [Recovering/Resolving]
  - Nausea [Recovering/Resolving]
  - Vomiting [Recovered/Resolved]

NARRATIVE: CASE EVENT DATE: 20221205
